FAERS Safety Report 17180336 (Version 1)
Quarter: 2019Q4

REPORT INFORMATION
  Report Type: Spontaneous
  Country: US (occurrence: US)
  Receive Date: 20191219
  Receipt Date: 20191219
  Transmission Date: 20200122
  Serious: No
  Sender: FDA-Public Use
  Company Number: US-UCBSA-108138

PATIENT
  Age: 28 Year
  Sex: Female
  Weight: 53.97 kg

DRUGS (6)
  1. IRON [Concomitant]
     Active Substance: IRON
     Dosage: UNK
  2. CALCIUM [Concomitant]
     Active Substance: CALCIUM
  3. CIMZIA [Suspect]
     Active Substance: CERTOLIZUMAB PEGOL
     Indication: CROHN^S DISEASE
     Dosage: 400 MG, EV 4 WEEKS, 2 INJECTIONS 200 MG EACH
     Dates: start: 2009
  4. PENTASA [Concomitant]
     Active Substance: MESALAMINE
     Dosage: 500 MG, 2X/DAY (BID)
  5. MULTIVITAMIN [Concomitant]
     Active Substance: VITAMINS
  6. AZATHIOPRINE. [Concomitant]
     Active Substance: AZATHIOPRINE
     Dosage: 100 MG -2 TABS, ONCE DAILY (QD)

REACTIONS (1)
  - Maternal exposure during pregnancy [Unknown]

NARRATIVE: CASE EVENT DATE: 201312
